FAERS Safety Report 23908862 (Version 1)
Quarter: 2024Q2

REPORT INFORMATION
  Report Type: Spontaneous
  Country: FI (occurrence: FI)
  Receive Date: 20240528
  Receipt Date: 20240528
  Transmission Date: 20240716
  Serious: Yes (Disabling)
  Sender: FDA-Public Use
  Company Number: None

PATIENT
  Age: 9 Year
  Sex: Female

DRUGS (1)
  1. COSENTYX [Suspect]
     Active Substance: SECUKINUMAB
     Indication: Psoriasis
     Dosage: UNK (75 MG INJEKTIONA IHON ALLE VIIKOILLA 0, 1, 2, 3 JA 4. T?M?N J?LKEEN INJEKTIO ANNETAAN KERRAN KU
     Route: 058
     Dates: start: 20240116, end: 20240523

REACTIONS (1)
  - Chronic recurrent multifocal osteomyelitis [Not Recovered/Not Resolved]

NARRATIVE: CASE EVENT DATE: 20240301
